FAERS Safety Report 5009092-2 (Version None)
Quarter: 2006Q2

REPORT INFORMATION
  Report Type: 
  Country: None (occurrence: None)
  Receive Date: 20060517
  Receipt Date: 20060504
  Transmission Date: 20061013
  Serious: Yes (Death, Life-Threatening, Hospitalization)
  Sender: FDA-Public Use
  Company Number: 2006059925

PATIENT
  Age: 71 Year
  Sex: Male
  Weight: 63 kg

DRUGS (9)
  1. SUTENT [Suspect]
     Indication: GASTROINTESTINAL STROMAL TUMOUR
     Dosage: 50 MG (50 MG, CYCLIC), ORAL
     Route: 048
     Dates: start: 20060126, end: 20060216
  2. SIMVASTATIN [Concomitant]
  3. CARVEDILOL [Concomitant]
  4. MORPHINE SULFATE [Concomitant]
  5. LANSOPRAZOLE [Concomitant]
  6. LISINOPRIL [Concomitant]
  7. FUROSEMIDE [Concomitant]
  8. NICORANDIL (NICORANDIL) [Concomitant]
  9. CLOPIDOGREL (CLOPIDOGREL) [Concomitant]

REACTIONS (14)
  - BLOOD CREATININE INCREASED [None]
  - BLOOD UREA INCREASED [None]
  - CARDIAC FAILURE CONGESTIVE [None]
  - COUGH [None]
  - DIZZINESS [None]
  - GENERAL PHYSICAL HEALTH DETERIORATION [None]
  - HAEMOGLOBIN DECREASED [None]
  - HYPOTENSION [None]
  - LIVER DISORDER [None]
  - NEUTROPENIC SEPSIS [None]
  - PLATELET COUNT DECREASED [None]
  - RESPIRATORY TRACT INFECTION [None]
  - STREPTOCOCCAL INFECTION [None]
  - URINARY RETENTION [None]
